FAERS Safety Report 10394878 (Version 3)
Quarter: 2014Q3

REPORT INFORMATION
  Report Type: Spontaneous
  Country: US (occurrence: US)
  Receive Date: 20140820
  Receipt Date: 20140908
  Transmission Date: 20150326
  Serious: No
  Sender: FDA-Public Use
  Company Number: US-ELI_LILLY_AND_COMPANY-US201407010514

PATIENT
  Age: 67 Year
  Sex: Male

DRUGS (2)
  1. AXIRON [Suspect]
     Active Substance: TESTOSTERONE
     Indication: PRODUCT USED FOR UNKNOWN INDICATION
     Dosage: 60 MG, QD
     Route: 061
     Dates: start: 2012
  2. AXIRON [Suspect]
     Active Substance: TESTOSTERONE
     Dosage: 30 MG, UNK
     Route: 065
     Dates: start: 201407

REACTIONS (20)
  - Feeling abnormal [Unknown]
  - Muscle hypertrophy [Unknown]
  - Blood testosterone decreased [Unknown]
  - Sleep disorder [Unknown]
  - Musculoskeletal pain [Unknown]
  - Weight decreased [Unknown]
  - Blood pressure decreased [Unknown]
  - Pain in extremity [Unknown]
  - Drug dose omission [Unknown]
  - Melanocytic naevus [Unknown]
  - Stress [Unknown]
  - Myalgia [Not Recovered/Not Resolved]
  - Night sweats [Not Recovered/Not Resolved]
  - Back pain [Unknown]
  - Urinary tract disorder [Unknown]
  - Peripheral swelling [Recovering/Resolving]
  - Hyperhidrosis [Unknown]
  - Oedema [Recovered/Resolved]
  - Hypophagia [Unknown]
  - Blood pressure increased [Unknown]

NARRATIVE: CASE EVENT DATE: 201408
